FAERS Safety Report 22057781 (Version 1)
Quarter: 2023Q1

REPORT INFORMATION
  Report Type: Report from Study
  Country: US (occurrence: US)
  Receive Date: 20230303
  Receipt Date: 20230303
  Transmission Date: 20230417
  Serious: No
  Sender: FDA-Public Use
  Company Number: US-HRARD-2021000489

PATIENT
  Age: 29 Year
  Sex: Female

DRUGS (6)
  1. METOPIRONE [Suspect]
     Active Substance: METYRAPONE
     Indication: Cushing^s syndrome
     Route: 048
     Dates: start: 20210503
  2. METOPIRONE [Suspect]
     Active Substance: METYRAPONE
     Indication: Cushing^s syndrome
     Dosage: 250 MG: TAKE 2 CAPSULES BY MOUTH EVERY 12 HOURS
     Route: 048
  3. KETOCONAZOLE [Concomitant]
     Active Substance: KETOCONAZOLE
     Indication: Product used for unknown indication
     Dosage: UNKNOWN
     Route: 065
  4. HYDROCORT TAB 5MG [Concomitant]
     Indication: Product used for unknown indication
  5. JUNEL 1.5/30 TAB [Concomitant]
     Indication: Product used for unknown indication
  6. LEVOTHYROXIN TAB 88MCG [Concomitant]
     Indication: Product used for unknown indication

REACTIONS (2)
  - Weight decreased [Not Recovered/Not Resolved]
  - Off label use [Not Recovered/Not Resolved]

NARRATIVE: CASE EVENT DATE: 20210503
